FAERS Safety Report 5163476-0 (Version None)
Quarter: 2006Q4

REPORT INFORMATION
  Report Type: 
  Country: None (occurrence: None)
  Receive Date: 20061124
  Receipt Date: 20061116
  Transmission Date: 20070319
  Serious: Yes (Other)
  Sender: FDA-Public Use
  Company Number: 2006132455

PATIENT
  Age: 19 Year
  Sex: Female
  Weight: 63.05 kg

DRUGS (1)
  1. ZOLOFT [Suspect]
     Dates: start: 20040401

REACTIONS (14)
  - AFFECT LABILITY [None]
  - AGITATION [None]
  - BULIMIA NERVOSA [None]
  - CONDITION AGGRAVATED [None]
  - DECREASED APPETITE [None]
  - DEPRESSION [None]
  - FEELING ABNORMAL [None]
  - INSOMNIA [None]
  - SCHIZOAFFECTIVE DISORDER [None]
  - SCHIZOPHRENIA, PARANOID TYPE [None]
  - SCRATCH [None]
  - SELF MUTILATION [None]
  - SUICIDAL IDEATION [None]
  - WEIGHT DECREASED [None]
